FAERS Safety Report 23226285 (Version 2)
Quarter: 2023Q4

REPORT INFORMATION
  Report Type: Spontaneous
  Country: CA (occurrence: None)
  Receive Date: 20231124
  Receipt Date: 20231218
  Transmission Date: 20240110
  Serious: Yes (Other)
  Sender: FDA-Public Use
  Company Number: 2023A267712

PATIENT
  Age: 15 Year
  Sex: Female
  Weight: 29 kg

DRUGS (1)
  1. SAPHNELO [Suspect]
     Active Substance: ANIFROLUMAB-FNIA
     Indication: Product used for unknown indication
     Route: 042
     Dates: start: 202302

REACTIONS (2)
  - Psoriasis [Unknown]
  - Off label use [Unknown]

NARRATIVE: CASE EVENT DATE: 20230601
